FAERS Safety Report 7388151-3 (Version None)
Quarter: 2011Q2

REPORT INFORMATION
  Report Type: 
  Country: None (occurrence: None)
  Receive Date: 20110401
  Receipt Date: 20101014
  Transmission Date: 20111010
  Serious: Yes (Hospitalization, Other)
  Sender: FDA-Public Use
  Company Number: US-BAYER-201016014NA

PATIENT
  Sex: Female
  Weight: 49.887 kg

DRUGS (4)
  1. YAZ [Suspect]
  2. ONE-A-DAY [MINERALS NOS,VITAMINS NOS] [Concomitant]
  3. ASCORBIC ACID [Concomitant]
  4. YASMIN [Suspect]
     Dosage: UNK UNK, QD
     Route: 048
     Dates: start: 20021201, end: 20030301

REACTIONS (2)
  - ISCHAEMIC CEREBRAL INFARCTION [None]
  - CEREBROVASCULAR ACCIDENT [None]
